FAERS Safety Report 4660949-1 (Version None)
Quarter: 2005Q2

REPORT INFORMATION
  Report Type: 
  Country: None (occurrence: None)
  Receive Date: 20050511
  Receipt Date: 20050428
  Transmission Date: 20051028
  Serious: Yes (Hospitalization)
  Sender: FDA-Public Use
  Company Number: CERZ-10875

PATIENT
  Age: 75 Year
  Sex: Female

DRUGS (1)
  1. CEREZYME [Suspect]
     Indication: GAUCHER'S DISEASE
     Dosage: 3400 UNITS Q2WKS IV
     Route: 042
     Dates: start: 19970401

REACTIONS (1)
  - SICK SINUS SYNDROME [None]
